FAERS Safety Report 8537544-7 (Version None)
Quarter: 2012Q3

REPORT INFORMATION
  Report Type: 
  Country: None (occurrence: None)
  Receive Date: 20120725
  Receipt Date: 20120718
  Transmission Date: 20120928
  Serious: Yes (Hospitalization)
  Sender: FDA-Public Use
  Company Number: US-US-EMD SERONO, INC.-7073670

PATIENT
  Sex: Male
  Weight: 104 kg

DRUGS (4)
  1. REBIF [Suspect]
     Indication: MULTIPLE SCLEROSIS
     Route: 058
     Dates: start: 20090720
  2. NPH INSULIN [Concomitant]
     Indication: TYPE 1 DIABETES MELLITUS
  3. INSULIN [Concomitant]
     Indication: TYPE 1 DIABETES MELLITUS
  4. LANTUS [Concomitant]
     Indication: TYPE 1 DIABETES MELLITUS

REACTIONS (5)
  - BLADDER DILATATION [None]
  - HYPOAESTHESIA [None]
  - BLOOD GLUCOSE INCREASED [None]
  - CONSTIPATION [None]
  - PNEUMONIA ASPIRATION [None]
